FAERS Safety Report 20110824 (Version 1)
Quarter: 2021Q4

REPORT INFORMATION
  Report Type: Spontaneous
  Country: US (occurrence: US)
  Receive Date: 20211124
  Receipt Date: 20211124
  Transmission Date: 20220304
  Serious: No
  Sender: FDA-Public Use
  Company Number: US-ROCHE-2750324

PATIENT
  Age: 65 Year
  Sex: Female

DRUGS (1)
  1. TARCEVA [Suspect]
     Active Substance: ERLOTINIB HYDROCHLORIDE
     Indication: Product used for unknown indication
     Route: 048
     Dates: start: 201807

REACTIONS (1)
  - Rash [Unknown]

NARRATIVE: CASE EVENT DATE: 20201028
